FAERS Safety Report 4702243-6 (Version None)
Quarter: 2005Q2

REPORT INFORMATION
  Report Type: 
  Country: None (occurrence: None)
  Receive Date: 20050629
  Receipt Date: 20050301
  Transmission Date: 20051028
  Serious: No
  Sender: FDA-Public Use
  Company Number: US-BRISTOL-MYERS SQUIBB COMPANY-12881520

PATIENT
  Age: 38 Year
  Sex: Male
  Weight: 80 kg

DRUGS (7)
  1. REYATAZ [Suspect]
     Indication: HIV INFECTION
     Route: 048
     Dates: start: 20050202
  2. NORVIR [Concomitant]
  3. TRUVADA [Concomitant]
  4. AMBIEN [Concomitant]
  5. XANAX [Concomitant]
  6. FLOMAX [Concomitant]
  7. PROZAC [Concomitant]

REACTIONS (2)
  - ABDOMINAL DISTENSION [None]
  - HYPERBILIRUBINAEMIA [None]
